FAERS Safety Report 25451083 (Version 1)
Quarter: 2025Q2

REPORT INFORMATION
  Report Type: Spontaneous
  Country: CN (occurrence: CN)
  Receive Date: 20250618
  Receipt Date: 20250618
  Transmission Date: 20250716
  Serious: Yes (Hospitalization)
  Sender: MERCK SHARP & DOHME LLC
  Company Number: CN-009507513-2296356

PATIENT
  Age: 83 Year
  Sex: Male
  Weight: 65 kg

DRUGS (1)
  1. STEGLATRO [Suspect]
     Active Substance: ERTUGLIFLOZIN PIDOLATE
     Indication: Type 2 diabetes mellitus
     Dosage: 5 MG, ONCE DAILY
     Route: 048
     Dates: start: 20240617, end: 20250605

REACTIONS (2)
  - Hypotension [Recovering/Resolving]
  - Hypoperfusion [Recovering/Resolving]

NARRATIVE: CASE EVENT DATE: 20250603
